APPROVED DRUG PRODUCT: PREGABALIN
Active Ingredient: PREGABALIN
Strength: 25MG
Dosage Form/Route: CAPSULE;ORAL
Application: A091025 | Product #001
Applicant: ACTAVIS ELIZABETH LLC
Approved: Jul 9, 2020 | RLD: No | RS: No | Type: DISCN